FAERS Safety Report 4692295-4 (Version None)
Quarter: 2005Q2

REPORT INFORMATION
  Report Type: 
  Country: None (occurrence: None)
  Receive Date: 20050614
  Receipt Date: 20050607
  Transmission Date: 20051028
  Serious: Yes (Hospitalization, Other)
  Sender: FDA-Public Use
  Company Number: SEWYE732810JUN05

PATIENT
  Age: 53 Year
  Sex: Female

DRUGS (1)
  1. CYCLOSPORINE [Suspect]
     Indication: IMMUNOSUPPRESSION
     Dosage: 200 MG 2X PER 1 DAY; ORAL
     Route: 048
     Dates: start: 20041228

REACTIONS (2)
  - DISEASE RECURRENCE [None]
  - LYMPHOCELE [None]
